FAERS Safety Report 5715419-6 (Version None)
Quarter: 2008Q2

REPORT INFORMATION
  Report Type: 
  Country: None (occurrence: None)
  Receive Date: 20080423
  Receipt Date: 20080416
  Transmission Date: 20081010
  Serious: Yes (Hospitalization)
  Sender: FDA-Public Use
  Company Number: IL-PFIZER INC-2008033851

PATIENT
  Age: 60 Year
  Sex: Female

DRUGS (2)
  1. SUTENT [Suspect]
     Indication: RENAL CELL CARCINOMA
     Route: 048
  2. SUTENT [Suspect]

REACTIONS (1)
  - CONVULSION [None]
